FAERS Safety Report 8139420-0 (Version None)
Quarter: 2012Q1

REPORT INFORMATION
  Report Type: 
  Country: None (occurrence: None)
  Receive Date: 20120215
  Receipt Date: 20120207
  Transmission Date: 20120608
  Serious: Yes (Other)
  Sender: FDA-Public Use
  Company Number: US-ROCHE-794318

PATIENT
  Sex: Male
  Weight: 81.72 kg

DRUGS (1)
  1. ACCUTANE [Suspect]
     Indication: ACNE
     Route: 065
     Dates: start: 19960101, end: 19970101

REACTIONS (5)
  - SUICIDAL IDEATION [None]
  - INFLAMMATORY BOWEL DISEASE [None]
  - MENTAL DISORDER [None]
  - CONJUNCTIVAL ABRASION [None]
  - SINUSITIS [None]
